FAERS Safety Report 7442505-5 (Version None)
Quarter: 2011Q2

REPORT INFORMATION
  Report Type: 
  Country: None (occurrence: None)
  Receive Date: 20110428
  Receipt Date: 20110420
  Transmission Date: 20111010
  Serious: Yes (Other)
  Sender: FDA-Public Use
  Company Number: JP-SANOFI-AVENTIS-2011SA025396

PATIENT
  Sex: Male

DRUGS (2)
  1. GLUCOCORTICOIDS [Concomitant]
     Route: 065
  2. DOCETAXEL [Suspect]
     Indication: PROSTATE CANCER
     Route: 065

REACTIONS (7)
  - GASTROINTESTINAL ULCER [None]
  - DECREASED APPETITE [None]
  - INTERSTITIAL LUNG DISEASE [None]
  - OEDEMA [None]
  - FEBRILE NEUTROPENIA [None]
  - NEUTROPENIA [None]
  - HAEMOGLOBIN DECREASED [None]
